FAERS Safety Report 21898914 (Version 6)
Quarter: 2024Q4

REPORT INFORMATION
  Report Type: Spontaneous
  Country: US (occurrence: US)
  Receive Date: 20230123
  Receipt Date: 20241216
  Transmission Date: 20250114
  Serious: Yes (Other)
  Sender: PFIZER
  Company Number: US-PFIZER INC-PV202300012596

PATIENT
  Age: 81 Year
  Sex: Female

DRUGS (22)
  1. XELJANZ XR [Suspect]
     Active Substance: TOFACITINIB CITRATE
     Indication: Rheumatoid arthritis
     Dosage: 11 MG
  2. ACETAMINOPHEN [Concomitant]
     Active Substance: ACETAMINOPHEN
     Dosage: UNK
  3. ALPHA LIPOIC ACID [Concomitant]
     Active Substance: .ALPHA.-LIPOIC ACID
     Dosage: UNK
  4. ZEBETA [Concomitant]
     Active Substance: BISOPROLOL FUMARATE
     Dosage: UNK
  5. ALPHAGAN P [Concomitant]
     Active Substance: BRIMONIDINE TARTRATE
     Dosage: UNK
  6. DICLOFENAC [Concomitant]
     Active Substance: DICLOFENAC
     Dosage: UNK
  7. ZYRTEC [Concomitant]
     Active Substance: CETIRIZINE HYDROCHLORIDE
     Dosage: UNK
  8. PEPCID [Concomitant]
     Active Substance: FAMOTIDINE
     Dosage: UNK
  9. MOMETASONE FUROATE [Concomitant]
     Active Substance: MOMETASONE FUROATE
     Dosage: UNK
  10. XALATAN [Concomitant]
     Active Substance: LATANOPROST
     Dosage: UNK
  11. XOPENEX [Concomitant]
     Active Substance: LEVALBUTEROL HYDROCHLORIDE
     Dosage: UNK
  12. SINGULAIR [Concomitant]
     Active Substance: MONTELUKAST SODIUM
     Dosage: UNK
  13. PROCARDIA [Concomitant]
     Active Substance: NIFEDIPINE
     Dosage: UNK
  14. NITROSTAT [Concomitant]
     Active Substance: NITROGLYCERIN
     Dosage: UNK
  15. CRESTOR [Concomitant]
     Active Substance: ROSUVASTATIN CALCIUM
     Dosage: UNK
  16. JANUVIA [Concomitant]
     Active Substance: SITAGLIPTIN PHOSPHATE
     Dosage: UNK
  17. CARAFATE [Concomitant]
     Active Substance: SUCRALFATE
     Dosage: UNK
  18. STIOLTO RESPIMAT [Concomitant]
     Active Substance: OLODATEROL HYDROCHLORIDE\TIOTROPIUM BROMIDE MONOHYDRATE
     Dosage: UNK
  19. DESYREL [Concomitant]
     Active Substance: TRAZODONE HYDROCHLORIDE
     Dosage: UNK
  20. RETIN-A [Concomitant]
     Active Substance: TRETINOIN
     Dosage: UNK
  21. UBIQUINOL [Concomitant]
     Active Substance: UBIQUINOL
     Dosage: UNK
  22. DIOVAN [Concomitant]
     Active Substance: VALSARTAN
     Dosage: UNK

REACTIONS (3)
  - Blindness [Unknown]
  - Visual impairment [Unknown]
  - Pain [Unknown]
